FAERS Safety Report 8457058-2 (Version None)
Quarter: 2012Q2

REPORT INFORMATION
  Report Type: 
  Country: None (occurrence: None)
  Receive Date: 20120621
  Receipt Date: 20120612
  Transmission Date: 20120825
  Serious: Yes (Other)
  Sender: FDA-Public Use
  Company Number: PT-ABBOTT-12P-130-0945513-00

PATIENT
  Sex: Female

DRUGS (1)
  1. HUMIRA [Suspect]
     Indication: CROHN'S DISEASE
     Route: 058
     Dates: start: 20120101

REACTIONS (3)
  - TACHYCARDIA [None]
  - HYPERSENSITIVITY [None]
  - HYPERHIDROSIS [None]
